FAERS Safety Report 7312543-1 (Version None)
Quarter: 2011Q1

REPORT INFORMATION
  Report Type: 
  Country: None (occurrence: None)
  Receive Date: 20110214
  Receipt Date: 20110202
  Transmission Date: 20110831
  Serious: Yes (Other)
  Sender: FDA-Public Use
  Company Number: IPC201102-000110

PATIENT
  Age: 41 Year
  Sex: Female

DRUGS (3)
  1. ASPIRIN [Suspect]
     Indication: PAIN
  2. CAFFEINE [Suspect]
     Indication: PAIN
  3. METFORMIN HYDROCHLORIDE [Suspect]
     Indication: TYPE 2 DIABETES MELLITUS

REACTIONS (1)
  - DRUG ERUPTION [None]
